FAERS Safety Report 8430346-1 (Version None)
Quarter: 2012Q2

REPORT INFORMATION
  Report Type: 
  Country: None (occurrence: None)
  Receive Date: 20120323
  Receipt Date: 20110701
  Transmission Date: 20120825
  Serious: Yes (Hospitalization)
  Sender: FDA-Public Use
  Company Number: 163-21880-11070466

PATIENT
  Age: 54 Year
  Sex: Male

DRUGS (7)
  1. RENVELA [Concomitant]
  2. ASPIRIN [Concomitant]
  3. LORATADINE [Concomitant]
  4. CALCIUM ACETATE [Concomitant]
  5. REVLIMID [Suspect]
     Dosage: 5 MG, QD X 21 DAYS/28 DAYS, PO
     Route: 048
     Dates: start: 20101101, end: 20110401
  6. DETROL LA [Concomitant]
  7. VALACYCLOVIR [Concomitant]

REACTIONS (2)
  - PANCYTOPENIA [None]
  - SEPSIS [None]
